FAERS Safety Report 15958045 (Version 4)
Quarter: 2020Q2

REPORT INFORMATION
  Report Type: Report from Study
  Country: US (occurrence: US)
  Receive Date: 20190213
  Receipt Date: 20200424
  Transmission Date: 20200713
  Serious: Yes (Other)
  Sender: FDA-Public Use
  Company Number: PHEH2019US006364

PATIENT
  Sex: Male

DRUGS (1)
  1. GILENYA [Suspect]
     Active Substance: FINGOLIMOD HYDROCHLORIDE
     Indication: MULTIPLE SCLEROSIS
     Dosage: 0.5 MG, QD
     Route: 048
     Dates: start: 20190116

REACTIONS (7)
  - Vertigo [Unknown]
  - Multiple sclerosis [Unknown]
  - Diarrhoea [Unknown]
  - Central nervous system lesion [Unknown]
  - Dysarthria [Unknown]
  - Feeling abnormal [Unknown]
  - Dizziness [Unknown]
